FAERS Safety Report 19276391 (Version 1)
Quarter: 2021Q2

REPORT INFORMATION
  Report Type: Spontaneous
  Country: FR (occurrence: FR)
  Receive Date: 20210520
  Receipt Date: 20210520
  Transmission Date: 20210717
  Serious: Yes (Hospitalization)
  Sender: FDA-Public Use
  Company Number: FR-ACCORD-225457

PATIENT
  Age: 49 Year
  Sex: Male

DRUGS (2)
  1. IRINOTECAN [Suspect]
     Active Substance: IRINOTECAN
     Indication: MEDULLOBLASTOMA RECURRENT
     Route: 042
     Dates: start: 202008, end: 20210205
  2. RAPAMYCIN [Suspect]
     Active Substance: SIROLIMUS
     Indication: MEDULLOBLASTOMA RECURRENT
     Route: 048
     Dates: start: 202008, end: 20210223

REACTIONS (3)
  - Alveolitis [Not Recovered/Not Resolved]
  - Off label use [Unknown]
  - Interstitial lung disease [Not Recovered/Not Resolved]

NARRATIVE: CASE EVENT DATE: 20210220
